FAERS Safety Report 11358850 (Version 1)
Quarter: 2015Q3

REPORT INFORMATION
  Report Type: Spontaneous
  Country: US (occurrence: None)
  Receive Date: 20150807
  Receipt Date: 20150807
  Transmission Date: 20151125
  Serious: Yes (Disabling)
  Sender: FDA-Public Use
  Company Number: None

PATIENT
  Age: 25 Year
  Sex: Female
  Weight: 49.9 kg

DRUGS (4)
  1. OMEGA 3^S [Concomitant]
  2. VITAMIN [Concomitant]
     Active Substance: VITAMINS
  3. B 13 [Concomitant]
  4. SKYLA [Suspect]
     Active Substance: LEVONORGESTREL

REACTIONS (20)
  - Abdominal pain [None]
  - Dyspepsia [None]
  - Gastritis [None]
  - Candida infection [None]
  - Fatigue [None]
  - Oropharyngeal pain [None]
  - Menorrhagia [None]
  - Diarrhoea [None]
  - Weight decreased [None]
  - Irritable bowel syndrome [None]
  - Alopecia [None]
  - Food intolerance [None]
  - Abdominal distension [None]
  - Muscular weakness [None]
  - Multiple allergies [None]
  - Amnesia [None]
  - Dysmenorrhoea [None]
  - Small intestinal bacterial overgrowth [None]
  - Feeling abnormal [None]
  - Quality of life decreased [None]

NARRATIVE: CASE EVENT DATE: 20150806
